FAERS Safety Report 4365842-X (Version None)
Quarter: 2004Q2

REPORT INFORMATION
  Report Type: 
  Country: None (occurrence: None)
  Receive Date: 20040521
  Receipt Date: 20040512
  Transmission Date: 20050107
  Serious: Yes (Hospitalization)
  Sender: FDA-Public Use
  Company Number: 2004207704US

PATIENT
  Age: 70 Year
  Sex: Female
  Weight: 62 kg

DRUGS (15)
  1. CELEBREX [Suspect]
     Indication: PANCREATIC CARCINOMA
     Dosage: 800 MG, QD, ORAL
     Route: 048
     Dates: start: 20030716, end: 20040330
  2. CAMPTOSAR [Suspect]
     Indication: PANCREATIC CARCINOMA
     Dosage: 85 MG, CYCLIC, IV
     Route: 042
     Dates: start: 20030716
  3. COMPARATOR-GEMCITABINE (GEMCITABINE, GEMCITABINE) INJECTION [Suspect]
     Indication: PANCREATIC CARCINOMA
     Dosage: 850 MG, CYCLIC, IV
     Route: 042
     Dates: start: 20030716
  4. IMODIUM [Concomitant]
  5. VITAMIN C [Concomitant]
  6. COMPAZINE [Concomitant]
  7. MULTIVITAMINS (PANTHENOL, RETINOL, ERGOCALCIFEROL) [Concomitant]
  8. IRON [Concomitant]
  9. VIOKASE (PANCRELIPASE) [Concomitant]
  10. ZELNORM [Concomitant]
  11. GLIPIZIDE [Concomitant]
  12. EFFEXOR [Concomitant]
  13. PRILOSEC [Concomitant]
  14. TYLENOL [Concomitant]
  15. VIOKASE (PANCRELIPASE) [Concomitant]

REACTIONS (5)
  - GASTRITIS HAEMORRHAGIC [None]
  - PLATELET COUNT DECREASED [None]
  - PROTHROMBIN TIME PROLONGED [None]
  - VARICES OESOPHAGEAL [None]
  - WHITE BLOOD CELL COUNT DECREASED [None]
